FAERS Safety Report 10154030 (Version 1)
Quarter: 2014Q2

REPORT INFORMATION
  Report Type: Other
  Country: GB (occurrence: GB)
  Receive Date: 20140506
  Receipt Date: 20140506
  Transmission Date: 20141212
  Serious: Yes (Other)
  Sender: FDA-Public Use
  Company Number: GB-SHIRE-GB201401870

PATIENT
  Sex: Female

DRUGS (2)
  1. VPRIV [Suspect]
     Indication: GAUCHER^S DISEASE
     Dosage: 800 IU  (ALTERNATE WITH 1200 IU DOSE), 1X/2WKS(FORTNIGHTLY)
     Route: 041
     Dates: start: 201208
  2. VPRIV [Suspect]
     Dosage: 1200 IU (ALTERNATE WITH 800 IU DOSE), 1X/2WKS (FORTNIGHTLY)
     Route: 041
     Dates: start: 201208

REACTIONS (2)
  - Ear infection [Not Recovered/Not Resolved]
  - Cough [Not Recovered/Not Resolved]
